FAERS Safety Report 6639322-2 (Version None)
Quarter: 2010Q1

REPORT INFORMATION
  Report Type: 
  Country: None (occurrence: None)
  Receive Date: 20100315
  Receipt Date: 20100225
  Transmission Date: 20100710
  Serious: Yes (Death)
  Sender: FDA-Public Use
  Company Number: 2010VX000084

PATIENT
  Age: 46 Year
  Sex: Female

DRUGS (2)
  1. DIASTAT [Suspect]
     Indication: DRUG USE FOR UNKNOWN INDICATION
  2. ETHANOL [Suspect]
     Indication: DRUG USE FOR UNKNOWN INDICATION

REACTIONS (7)
  - ACUTE HEPATIC FAILURE [None]
  - ALCOHOL USE [None]
  - BLOOD POTASSIUM DECREASED [None]
  - DRUG ABUSE [None]
  - LETHARGY [None]
  - MENTAL STATUS CHANGES [None]
  - SOMNOLENCE [None]
